FAERS Safety Report 17588783 (Version 1)
Quarter: 2020Q1

REPORT INFORMATION
  Report Type: Spontaneous
  Country: US (occurrence: US)
  Receive Date: 20200327
  Receipt Date: 20200327
  Transmission Date: 20200409
  Serious: Yes (Hospitalization, Other)
  Sender: FDA-Public Use
  Company Number: US-ALEXION PHARMACEUTICALS INC.-A202004142

PATIENT
  Age: 63 Year
  Sex: Male

DRUGS (1)
  1. SOLIRIS [Suspect]
     Active Substance: ECULIZUMAB
     Indication: ATYPICAL HAEMOLYTIC URAEMIC SYNDROME
     Dosage: 1200 MG, Q2W
     Route: 042

REACTIONS (10)
  - Cardiac failure [Recovering/Resolving]
  - Chest pain [Unknown]
  - Hypotension [Unknown]
  - Myocardial oedema [Unknown]
  - Dyspnoea exertional [Unknown]
  - Pleural effusion [Unknown]
  - Hypoxia [Recovering/Resolving]
  - Hypertension [Unknown]
  - Systolic dysfunction [Recovered/Resolved]
  - Coronary artery disease [Unknown]
